FAERS Safety Report 4580365-0 (Version None)
Quarter: 2005Q1

REPORT INFORMATION
  Report Type: 
  Country: None (occurrence: None)
  Receive Date: 20050214
  Receipt Date: 20040107
  Transmission Date: 20050727
  Serious: No
  Sender: FDA-Public Use
  Company Number: US-GLAXOSMITHKLINE-A0491917A

PATIENT
  Sex: Female

DRUGS (3)
  1. LAMICTAL [Suspect]
     Indication: DEPRESSION
     Dosage: 75MG PER DAY
     Route: 048
     Dates: start: 20031118, end: 20031230
  2. ZYPREXA [Concomitant]
  3. STRATTERA [Concomitant]

REACTIONS (3)
  - ASTHENIA [None]
  - LYMPHADENOPATHY [None]
  - MOUTH ULCERATION [None]
